FAERS Safety Report 7542995-3 (Version None)
Quarter: 2011Q2

REPORT INFORMATION
  Report Type: 
  Country: None (occurrence: None)
  Receive Date: 20110524
  Receipt Date: 20110401
  Transmission Date: 20111010
  Serious: No
  Sender: FDA-Public Use
  Company Number: 019950

PATIENT
  Sex: Female
  Weight: 52.1 kg

DRUGS (9)
  1. PREDNISONE [Concomitant]
  2. IMURAN [Concomitant]
  3. LORCET-HD [Concomitant]
  4. CALCIUM CARBONATE [Concomitant]
  5. CIMZIA [Suspect]
     Indication: CROHN'S DISEASE
     Dosage: (400 MG 1X/4 WEEKS, EVERY FOUR WEEKS SUBCUTANEOUS), (400 MG 1X/MONTH SUBCUTANEOUS)
     Route: 058
     Dates: start: 20100906
  6. CIMZIA [Suspect]
  7. TUMS /00193601/ [Concomitant]
  8. ATENOLOL [Concomitant]
  9. LIDODERM [Concomitant]

REACTIONS (26)
  - HEADACHE [None]
  - FATIGUE [None]
  - PELVIC PAIN [None]
  - BLOOD PRESSURE INCREASED [None]
  - VOMITING [None]
  - EPISTAXIS [None]
  - INJECTION SITE PAIN [None]
  - INJECTION SITE SWELLING [None]
  - CONTUSION [None]
  - DRUG INEFFECTIVE [None]
  - LETHARGY [None]
  - FEELING COLD [None]
  - MUSCLE SPASMS [None]
  - CHEST DISCOMFORT [None]
  - HOT FLUSH [None]
  - ABDOMINAL DISCOMFORT [None]
  - MUSCLE MASS [None]
  - ASTHENIA [None]
  - EAR PAIN [None]
  - ABDOMINAL PAIN [None]
  - FLUSHING [None]
  - ARTHRALGIA [None]
  - PAIN IN EXTREMITY [None]
  - ABDOMINAL DISTENSION [None]
  - MYALGIA [None]
  - DEPRESSION [None]
